FAERS Safety Report 6945085-3 (Version None)
Quarter: 2010Q3

REPORT INFORMATION
  Report Type: 
  Country: None (occurrence: None)
  Receive Date: 20100827
  Receipt Date: 20100817
  Transmission Date: 20110219
  Serious: Yes (Other)
  Sender: FDA-Public Use
  Company Number: US-WYE-H16992410

PATIENT
  Sex: Female
  Weight: 74.91 kg

DRUGS (4)
  1. PREMARIN [Suspect]
     Indication: VAGINAL INFECTION
     Route: 067
     Dates: start: 20100728, end: 20100729
  2. CYCLOBENZAPRINE [Concomitant]
     Indication: MUSCLE DISORDER
     Dosage: 10 MG AS NEEDED
     Route: 065
  3. VITAMINS [Concomitant]
  4. ATENOLOL [Concomitant]
     Indication: BLOOD PRESSURE ABNORMAL
     Route: 065

REACTIONS (6)
  - DRUG HYPERSENSITIVITY [None]
  - PRURITUS [None]
  - PYREXIA [None]
  - RASH ERYTHEMATOUS [None]
  - RASH PRURITIC [None]
  - URTICARIA [None]
